FAERS Safety Report 7584194-5 (Version None)
Quarter: 2011Q2

REPORT INFORMATION
  Report Type: 
  Country: None (occurrence: None)
  Receive Date: 20110630
  Receipt Date: 20110621
  Transmission Date: 20111010
  Serious: Yes (Hospitalization)
  Sender: FDA-Public Use
  Company Number: BR-ASTRAZENECA-2010SE59308

PATIENT
  Age: 74 Year
  Sex: Female
  Weight: 63 kg

DRUGS (5)
  1. ADALAT [Concomitant]
     Route: 048
     Dates: start: 20050101, end: 20101001
  2. MONOCORDIL [Concomitant]
     Route: 048
     Dates: start: 20080101
  3. ATENOLOL [Suspect]
     Route: 048
     Dates: start: 20080101
  4. NARCAN [Concomitant]
     Route: 048
     Dates: end: 20080101
  5. ATACAND [Suspect]
     Indication: HYPERTENSION
     Route: 048
     Dates: start: 20070101, end: 20101201

REACTIONS (4)
  - CEREBRAL ARTERY EMBOLISM [None]
  - BRAIN OPERATION [None]
  - HEART RATE INCREASED [None]
  - OEDEMA PERIPHERAL [None]
